FAERS Safety Report 6727968-2 (Version None)
Quarter: 2010Q2

REPORT INFORMATION
  Report Type: 
  Country: None (occurrence: None)
  Receive Date: 20100517
  Receipt Date: 20100512
  Transmission Date: 20101027
  Serious: Yes (Hospitalization)
  Sender: FDA-Public Use
  Company Number: US-JNJFOC-20100400887

PATIENT
  Sex: Female
  Weight: 68.04 kg

DRUGS (17)
  1. FENTANYL CITRATE [Suspect]
     Indication: PAIN IN EXTREMITY
     Route: 062
  2. FENTANYL CITRATE [Suspect]
     Indication: MUSCULOSKELETAL PAIN
     Route: 062
  3. FENTANYL CITRATE [Suspect]
     Indication: BACK PAIN
     Route: 062
  4. FENTANYL CITRATE [Suspect]
     Indication: PAIN
     Route: 062
  5. FENTANYL CITRATE [Suspect]
     Route: 062
  6. FENTANYL CITRATE [Suspect]
     Route: 062
  7. FENTANYL CITRATE [Suspect]
     Route: 062
  8. FENTANYL CITRATE [Suspect]
     Route: 062
  9. DURAGESIC-100 [Suspect]
     Indication: PAIN IN EXTREMITY
     Route: 062
  10. DURAGESIC-100 [Suspect]
     Indication: MUSCULOSKELETAL PAIN
     Route: 062
  11. DURAGESIC-100 [Suspect]
     Indication: BACK PAIN
     Route: 062
  12. DURAGESIC-100 [Suspect]
     Indication: PAIN
     Route: 062
  13. LYRICA [Suspect]
     Indication: NEURALGIA
     Route: 048
  14. PERCOCET [Concomitant]
     Indication: BREAKTHROUGH PAIN
     Route: 048
  15. FENTANYL [Concomitant]
     Indication: BREAKTHROUGH PAIN
     Route: 002
  16. VALIUM [Concomitant]
     Indication: MUSCLE SPASMS
     Route: 048
  17. ANTIDEPRESSANT NOS [Concomitant]
     Route: 048

REACTIONS (8)
  - DRUG INEFFECTIVE [None]
  - FALL [None]
  - FEELING ABNORMAL [None]
  - INAPPROPRIATE SCHEDULE OF DRUG ADMINISTRATION [None]
  - INCORRECT DOSE ADMINISTERED [None]
  - LOWER LIMB FRACTURE [None]
  - PRODUCT QUALITY ISSUE [None]
  - TREATMENT NONCOMPLIANCE [None]
